FAERS Safety Report 18005845 (Version 1)
Quarter: 2020Q3

REPORT INFORMATION
  Report Type: Spontaneous
  Country: DE (occurrence: DE)
  Receive Date: 20200710
  Receipt Date: 20200710
  Transmission Date: 20201103
  Serious: Yes (Death, Other)
  Sender: FDA-Public Use
  Company Number: NVSC2020DE083988

PATIENT
  Sex: Male

DRUGS (1)
  1. PIQRAY [Suspect]
     Active Substance: ALPELISIB
     Indication: PROSTATE CANCER
     Dosage: 300 MG, QD
     Route: 065
     Dates: start: 202002

REACTIONS (4)
  - Medication error [Unknown]
  - Death [Fatal]
  - Product use in unapproved indication [Unknown]
  - Metastasis [Unknown]
